FAERS Safety Report 20774843 (Version 3)
Quarter: 2022Q2

REPORT INFORMATION
  Report Type: Report from Study
  Country: US (occurrence: US)
  Receive Date: 20220502
  Receipt Date: 20220518
  Transmission Date: 20220721
  Serious: Yes (Hospitalization, Other)
  Sender: FDA-Public Use
  Company Number: US-GLAXOSMITHKLINE-US2022GSK072211

PATIENT

DRUGS (12)
  1. BELIMUMAB [Suspect]
     Active Substance: BELIMUMAB
     Indication: Systemic lupus erythematosus
     Dosage: UNK, Z, EVERY 4 WEEKS
     Route: 064
     Dates: start: 201801
  2. BELIMUMAB [Suspect]
     Active Substance: BELIMUMAB
     Dosage: 10 MG/KG
     Route: 064
     Dates: start: 20210331
  3. BELIMUMAB [Suspect]
     Active Substance: BELIMUMAB
     Dosage: 10 MG/KG
     Route: 064
     Dates: start: 20210428
  4. BELIMUMAB [Suspect]
     Active Substance: BELIMUMAB
     Dosage: 10 MG/KG
     Route: 064
     Dates: start: 20210526
  5. BELIMUMAB [Suspect]
     Active Substance: BELIMUMAB
     Dosage: 10 MG/KG
     Route: 064
     Dates: start: 20210623
  6. BELIMUMAB [Suspect]
     Active Substance: BELIMUMAB
     Dosage: 10 MG/KG
     Route: 064
     Dates: start: 20210722
  7. BELIMUMAB [Suspect]
     Active Substance: BELIMUMAB
     Dosage: 10 MG/KG
     Route: 064
     Dates: start: 20210819
  8. WELLBUTRIN [Suspect]
     Active Substance: BUPROPION HYDROCHLORIDE
     Indication: Depression
     Dosage: UNK
     Route: 064
     Dates: start: 201304
  9. ZOFRAN [Suspect]
     Active Substance: ONDANSETRON HYDROCHLORIDE
     Indication: Nausea
     Dosage: UNK
     Route: 064
     Dates: start: 20210914
  10. ZOFRAN [Suspect]
     Active Substance: ONDANSETRON HYDROCHLORIDE
     Indication: Vomiting
  11. PROGESTERONE [Suspect]
     Active Substance: PROGESTERONE
     Indication: Prophylaxis
     Dosage: UNK
     Route: 064
     Dates: end: 2021
  12. PROGESTERONE [Suspect]
     Active Substance: PROGESTERONE
     Dosage: UNK UNK, BID
     Route: 064
     Dates: end: 2021

REACTIONS (8)
  - Premature baby [Not Recovered/Not Resolved]
  - Anaemia [Recovered/Resolved]
  - Low birth weight baby [Not Recovered/Not Resolved]
  - Small for dates baby [Not Recovered/Not Resolved]
  - Constipation [Recovered/Resolved]
  - Feeding disorder [Recovered/Resolved]
  - Foetal exposure during pregnancy [Unknown]
  - Maternal exposure during breast feeding [Unknown]

NARRATIVE: CASE EVENT DATE: 20220305
